FAERS Safety Report 23746513 (Version 4)
Quarter: 2025Q1

REPORT INFORMATION
  Report Type: Report from Study
  Country: CA (occurrence: CA)
  Receive Date: 20240416
  Receipt Date: 20250306
  Transmission Date: 20250409
  Serious: Yes (Death, Life-Threatening, Hospitalization, Disabling, Other)
  Sender: CELLTRION
  Company Number: CA-CELLTRION INC.-2024CA000233

PATIENT

DRUGS (12)
  1. ADALIMUMAB-AATY [Suspect]
     Active Substance: ADALIMUMAB-AATY
     Indication: Rheumatoid arthritis
     Dosage: 40 MG, Q2WEEKS/40 MILLIGRAMS, 1 EVERY 2 WEEKS
     Route: 058
     Dates: start: 20231209, end: 20240410
  2. ADALIMUMAB-AATY [Suspect]
     Active Substance: ADALIMUMAB-AATY
     Dosage: 40 MG, Q2WEEKS/40 MILLIGRAMS, 1 EVERY 2 WEEKS
     Route: 058
     Dates: start: 20231223
  3. ADALIMUMAB-AATY [Suspect]
     Active Substance: ADALIMUMAB-AATY
     Dosage: 40 MG, Q2WEEKS40 MILLIGRAMS, 1 EVERY 2 WEEKS
     Route: 058
     Dates: start: 20240106
  4. ALEVE [Concomitant]
     Active Substance: NAPROXEN SODIUM
  5. ARAVA [Concomitant]
     Active Substance: LEFLUNOMIDE
  6. FOLIC ACID [Concomitant]
     Active Substance: FOLIC ACID
  7. HYDROXYCHLOROQUINE SULFATE [Concomitant]
     Active Substance: HYDROXYCHLOROQUINE SULFATE
  8. METHOTREXATE [Concomitant]
     Active Substance: METHOTREXATE
     Dosage: WEEKLY INJECTIONS
  9. METHOTREXATE [Concomitant]
     Active Substance: METHOTREXATE
     Dosage: UNK, 1 EVERY 1 WEEK
  10. NAPROXEN SODIUM [Concomitant]
     Active Substance: NAPROXEN SODIUM
  11. PLAQUENIL [Concomitant]
     Active Substance: HYDROXYCHLOROQUINE SULFATE
  12. PREDNISONE [Concomitant]
     Active Substance: PREDNISONE

REACTIONS (12)
  - Arthralgia [Fatal]
  - Cardiac disorder [Fatal]
  - Dehydration [Fatal]
  - Multiple organ dysfunction syndrome [Fatal]
  - Renal failure [Fatal]
  - Rheumatoid arthritis [Fatal]
  - Pneumonia [Fatal]
  - Urinary tract infection [Fatal]
  - Urinary tract infection fungal [Fatal]
  - Urosepsis [Fatal]
  - Contraindication to medical treatment [Fatal]
  - Therapy non-responder [Fatal]

NARRATIVE: CASE EVENT DATE: 20231224
